FAERS Safety Report 17018962 (Version 1)
Quarter: 2019Q4

REPORT INFORMATION
  Report Type: Report from Study
  Country: US (occurrence: US)
  Receive Date: 20191112
  Receipt Date: 20191112
  Transmission Date: 20200122
  Serious: Yes (Other)
  Sender: FDA-Public Use
  Company Number: US-BEH-2019109029

PATIENT
  Age: 50 Year
  Sex: Female
  Weight: 54.88 kg

DRUGS (3)
  1. HAEGARDA [Suspect]
     Active Substance: HUMAN C1-ESTERASE INHIBITOR
     Indication: HEREDITARY ANGIOEDEMA
     Dosage: 4000 INTERNATIONAL UNIT, BIW
     Route: 058
     Dates: start: 20190506
  2. HAEGARDA [Suspect]
     Active Substance: HUMAN C1-ESTERASE INHIBITOR
     Indication: PROPHYLAXIS
  3. FIRAZYR [Concomitant]
     Active Substance: ICATIBANT ACETATE

REACTIONS (16)
  - Surgery [Unknown]
  - Wrong technique in product usage process [Unknown]
  - Memory impairment [Unknown]
  - Incubator therapy [Unknown]
  - Musculoskeletal disorder [Unknown]
  - Oral surgery [Unknown]
  - Weight decreased [Unknown]
  - No adverse event [Unknown]
  - Vascular injury [Unknown]
  - Root canal infection [Unknown]
  - Circumstance or information capable of leading to medication error [Unknown]
  - Contusion [Unknown]
  - Product dose omission [Unknown]
  - Poor venous access [Unknown]
  - Increased tendency to bruise [Unknown]
  - Hereditary angioedema [Unknown]

NARRATIVE: CASE EVENT DATE: 20191103
